FAERS Safety Report 5053880-3 (Version None)
Quarter: 2006Q3

REPORT INFORMATION
  Report Type: 
  Country: None (occurrence: None)
  Receive Date: 20060718
  Receipt Date: 20060710
  Transmission Date: 20061208
  Serious: Yes (Hospitalization)
  Sender: FDA-Public Use
  Company Number: US-JNJFOC-20060702755

PATIENT
  Sex: Female
  Weight: 56.7 kg

DRUGS (4)
  1. FENTANYL TRANSDERMAL SYSTEM [Suspect]
     Indication: PAIN
     Route: 062
  2. PERCODAN [Concomitant]
     Indication: PAIN
     Dosage: 7.5 MG, 1 EVERY 6 TO 8 HOURS, AS NEEDED, ORAL
     Route: 048
  3. TOPROL-XL [Concomitant]
     Route: 048
  4. AMIODARONE HCL [Concomitant]
     Route: 048

REACTIONS (6)
  - APPLICATION SITE PRURITUS [None]
  - APPLICATION SITE SWELLING [None]
  - APPLICATION SITE VESICLES [None]
  - CHRONIC OBSTRUCTIVE PULMONARY DISEASE [None]
  - HEPATIC NEOPLASM [None]
  - LOWER GASTROINTESTINAL HAEMORRHAGE [None]
